FAERS Safety Report 5467654-2 (Version None)
Quarter: 2007Q3

REPORT INFORMATION
  Report Type: 
  Country: None (occurrence: None)
  Receive Date: 20070921
  Receipt Date: 20070910
  Transmission Date: 20080115
  Serious: Yes (Hospitalization)
  Sender: FDA-Public Use
  Company Number: DSJ-2007-06226

PATIENT
  Age: 57 Year
  Sex: Female

DRUGS (24)
  1. OLMESARTAN MEDOXOMIL [Suspect]
     Indication: DIABETIC NEPHROPATHY
     Dosage: (10 MG, 1 IN 1 D), PER ORAL 20 MG (20 MG, 1 IN 1 D), PER ORAL 40 MG (40 MG, 1 IN 1 D), PER ORAL
     Route: 048
     Dates: start: 20040519
  2. OLMESARTAN MEDOXOMIL [Suspect]
     Indication: TYPE 2 DIABETES MELLITUS
     Dosage: (10 MG, 1 IN 1 D), PER ORAL 20 MG (20 MG, 1 IN 1 D), PER ORAL 40 MG (40 MG, 1 IN 1 D), PER ORAL
     Route: 048
     Dates: start: 20040519
  3. OLMESARTAN MEDOXOMIL [Suspect]
     Indication: DIABETIC NEPHROPATHY
     Dosage: (10 MG, 1 IN 1 D), PER ORAL 20 MG (20 MG, 1 IN 1 D), PER ORAL 40 MG (40 MG, 1 IN 1 D), PER ORAL
     Route: 048
     Dates: start: 20070714
  4. OLMESARTAN MEDOXOMIL [Suspect]
     Indication: TYPE 2 DIABETES MELLITUS
     Dosage: (10 MG, 1 IN 1 D), PER ORAL 20 MG (20 MG, 1 IN 1 D), PER ORAL 40 MG (40 MG, 1 IN 1 D), PER ORAL
     Route: 048
     Dates: start: 20070714
  5. BUFFERIN (ACETYLSALICYLIC ACD, ALUMINIUM GLYCINATE) [Concomitant]
  6. ACEOL (TEMOCAPRIL HYDROCHLORIDE) (TABLET) (TEMOCAPRIL HYDROCHLORIDE) [Concomitant]
  7. LASIX (FUROSEMIDE) (TABLET) (FUROSEMIDE) [Concomitant]
  8. FLUTRAN (TRICHLORMETHIAZIDE) (TABLET) (TRICHLORMETHIAZIDE) [Concomitant]
  9. THYRADIN (THYROID) (TABLET) (THYROID) [Concomitant]
  10. LIPITOR (ATORVASTATIN) (TABLET) (ATORVASTATIN) [Concomitant]
  11. AMIYU (AMINO ACIDS NOS) (GRANULES) (AMINO ACIDS NOS) [Concomitant]
  12. NORVASC (AMLODIPINE) (TABLET) (AMLODIPINE) [Concomitant]
  13. LAXOBERON (SODIUM PICOSULFATE) (SODIUM PICOSULFATE) [Concomitant]
  14. CARDENALIN (DOXAZOSIN MESILATE) (TABLET) (DOXAZOSIN MESILATE) [Concomitant]
  15. SODIUM BICARBONATE (SODIUM BICARBONATE) (SODIUM BICARBONATE) [Concomitant]
  16. ZYLORIC (ALLOPURINOL) (TABLET) (ALLOPURINOL) [Concomitant]
  17. GASMOTIN (MOSAPRIDE CITRATE) (TABLET) (MOSAPRIDE CITRATE) [Concomitant]
  18. EPOGIN (EPOETIN BETA) (EPOETIN BETA) [Concomitant]
  19. AO CREAM (SODIUM CHLORIDE, HYDROGEN PEROXIDE) [Concomitant]
  20. HIRUDOID (MUCOPOLYSACCHARIDE POLYSULFURIC ACID ESTER) (MUCOPOLYSACCHAR [Concomitant]
  21. FERROMIA (FERROUS CITRATE) (TABLET) (FERROUS CITRATE) [Concomitant]
  22. INTAL (CROMOGLICATE SODIUM) (EAR DROPS) (CROMOGLICATE SODIUM) [Concomitant]
  23. BASEN OD (VOGLIBOSE) (TABLET) (VOGLIBOSE) [Concomitant]
  24. KALIMATE (CALCIUM POLYSTYRENE SULFONATE) (CALCIUM POLYSTYRENE SULFONAT [Concomitant]

REACTIONS (7)
  - C-REACTIVE PROTEIN DECREASED [None]
  - CONDITION AGGRAVATED [None]
  - INFLAMMATION [None]
  - NASOPHARYNGITIS [None]
  - RENAL FAILURE [None]
  - URINARY TRACT INFECTION [None]
  - WHITE BLOOD CELL COUNT DECREASED [None]
